FAERS Safety Report 8087034-3 (Version None)
Quarter: 2012Q1

REPORT INFORMATION
  Report Type: 
  Country: None (occurrence: None)
  Receive Date: 20120128
  Receipt Date: 20110520
  Transmission Date: 20120608
  Serious: No
  Sender: FDA-Public Use
  Company Number: US-ABBOTT-11P-163-0727723-00

PATIENT
  Age: 25 Year
  Sex: Female

DRUGS (2)
  1. HUMIRA [Suspect]
     Indication: PSORIASIS
     Dates: start: 20110301
  2. CYMBALTA [Concomitant]
     Indication: DEPRESSION

REACTIONS (3)
  - RASH PRURITIC [None]
  - EXFOLIATIVE RASH [None]
  - RASH MACULO-PAPULAR [None]
